FAERS Safety Report 18658597 (Version 1)
Quarter: 2020Q4

REPORT INFORMATION
  Report Type: Other
  Country: JP (occurrence: JP)
  Receive Date: 20201224
  Receipt Date: 20201224
  Transmission Date: 20210114
  Serious: Yes (Death, Other)
  Sender: FDA-Public Use
  Company Number: JP-ROCHE-2734027

PATIENT

DRUGS (11)
  1. NIVOLUMAB [Concomitant]
     Active Substance: NIVOLUMAB
  2. PACLITAXEL. [Concomitant]
     Active Substance: PACLITAXEL
  3. TS-1 [Concomitant]
     Active Substance: GIMERACIL\OTERACIL\TEGAFUR
  4. OXALIPLATIN. [Concomitant]
     Active Substance: OXALIPLATIN
  5. CAPECITABINE. [Suspect]
     Active Substance: CAPECITABINE
     Indication: GASTRIC CANCER
     Dosage: ON DAY 1-14 OF EACH 3-WEEK CYCLE
     Route: 048
  6. RAMUCIRUMAB [Concomitant]
     Active Substance: RAMUCIRUMAB
  7. FLUOROURACIL. [Suspect]
     Active Substance: FLUOROURACIL
     Indication: GASTRIC CANCER
     Dosage: DAY 1-5 OF EACH 3-WEEK CYCLE
     Route: 042
  8. DOCETAXEL. [Concomitant]
     Active Substance: DOCETAXEL
  9. CISPLATIN. [Suspect]
     Active Substance: CISPLATIN
     Indication: GASTRIC CANCER
     Dosage: ON DAY 1 OF EACH WEEK IN 3-WEEK CYCLES (6 CYCLE MAXIMUM PER LOCAL COUNTRY GUIDELINES
     Route: 042
  10. PEMBROLIZUMAB. [Suspect]
     Active Substance: PEMBROLIZUMAB
     Indication: GASTRIC CANCER
     Dosage: ON DAY 1 OF EACH WEEK IN 3-WEEK CYCLES FOR UP TO 35 CYCLES (APPROXIMATELY 2 YEARS
     Route: 042
  11. IRINOTECAN [Concomitant]
     Active Substance: IRINOTECAN

REACTIONS (42)
  - Palmar-plantar erythrodysaesthesia syndrome [Unknown]
  - Asthenia [Unknown]
  - Constipation [Unknown]
  - Platelet count decreased [Unknown]
  - Hypokalaemia [Unknown]
  - Dehydration [Unknown]
  - Stomatitis [Unknown]
  - Rash [Unknown]
  - Hypothyroidism [Unknown]
  - Neuropathy peripheral [Unknown]
  - Blood creatinine increased [Unknown]
  - Hepatitis [Unknown]
  - Pancreatitis [Unknown]
  - Fatigue [Unknown]
  - Decreased appetite [Unknown]
  - Type 1 diabetes mellitus [Unknown]
  - Febrile neutropenia [Fatal]
  - Myocardial ischaemia [Fatal]
  - Colitis [Fatal]
  - Nausea [Unknown]
  - Anaemia [Unknown]
  - Neutrophil count decreased [Unknown]
  - White blood cell count decreased [Unknown]
  - Adrenal insufficiency [Unknown]
  - Pneumonitis [Fatal]
  - Neutropenia [Unknown]
  - Tinnitus [Unknown]
  - Dizziness [Unknown]
  - Nephritis [Unknown]
  - Pulmonary embolism [Fatal]
  - Vomiting [Unknown]
  - Diarrhoea [Unknown]
  - Mucosal inflammation [Unknown]
  - Peripheral sensory neuropathy [Unknown]
  - Thrombocytopenia [Unknown]
  - Leukopenia [Unknown]
  - Sepsis [Fatal]
  - Malignant neoplasm progression [Fatal]
  - Multiple organ dysfunction syndrome [Fatal]
  - Hypomagnesaemia [Unknown]
  - Weight decreased [Unknown]
  - Enterocolitis [Fatal]
